FAERS Safety Report 25659908 (Version 2)
Quarter: 2025Q3

REPORT INFORMATION
  Report Type: Spontaneous
  Country: EU (occurrence: EU)
  Receive Date: 20250808
  Receipt Date: 20250820
  Transmission Date: 20251021
  Serious: Yes (Death, Life-Threatening, Hospitalization)
  Sender: GALPHARM INTERNATIONAL
  Company Number: EU-MLMSERVICE-20250722-PI586945-00330-1

PATIENT
  Age: 59 Year
  Sex: Female
  Weight: 67.5 kg

DRUGS (8)
  1. ACETAMINOPHEN [Suspect]
     Active Substance: ACETAMINOPHEN
     Indication: Product used for unknown indication
     Route: 048
  2. VENLAFAXINE [Suspect]
     Active Substance: VENLAFAXINE HYDROCHLORIDE
     Indication: Depression
     Route: 048
  3. MIRTAZAPINE [Suspect]
     Active Substance: MIRTAZAPINE
     Indication: Depression
     Route: 048
  4. MIRTAZAPINE [Suspect]
     Active Substance: MIRTAZAPINE
     Route: 048
  5. ZOPICLONE [Suspect]
     Active Substance: ZOPICLONE
     Indication: Sleep disorder
     Route: 048
  6. ZOPICLONE [Suspect]
     Active Substance: ZOPICLONE
     Route: 048
  7. OXAZEPAM [Suspect]
     Active Substance: OXAZEPAM
     Indication: Anxiety disorder
     Route: 048
  8. OXAZEPAM [Suspect]
     Active Substance: OXAZEPAM
     Route: 048

REACTIONS (12)
  - Intentional overdose [Fatal]
  - Completed suicide [Fatal]
  - Coma [Fatal]
  - Hypothermia [Fatal]
  - Miosis [Fatal]
  - Electrocardiogram QT prolonged [Fatal]
  - Shock [Fatal]
  - Bezoar [Fatal]
  - Acute respiratory distress syndrome [Fatal]
  - Multiple organ dysfunction syndrome [Fatal]
  - Serotonin syndrome [Fatal]
  - Toxicity to various agents [Fatal]
